FAERS Safety Report 25161693 (Version 5)
Quarter: 2025Q2

REPORT INFORMATION
  Report Type: Spontaneous
  Country: US (occurrence: US)
  Receive Date: 20250404
  Receipt Date: 20250506
  Transmission Date: 20250716
  Serious: No
  Sender: BIOGEN
  Company Number: US-BIOGEN-2025BI01306493

PATIENT
  Sex: Female

DRUGS (2)
  1. TYSABRI [Suspect]
     Active Substance: NATALIZUMAB
     Indication: Multiple sclerosis
     Dosage: CURRENT REGIMEN
     Route: 050
     Dates: start: 20250403
  2. TYSABRI [Suspect]
     Active Substance: NATALIZUMAB
     Dosage: PAST REGIMEN
     Route: 050
     Dates: start: 20141027, end: 20250226

REACTIONS (3)
  - Confusional state [Unknown]
  - Pulse abnormal [Unknown]
  - Hypertension [Unknown]
